FAERS Safety Report 7607088-5 (Version None)
Quarter: 2011Q3

REPORT INFORMATION
  Report Type: 
  Country: None (occurrence: None)
  Receive Date: 20110713
  Receipt Date: 20110629
  Transmission Date: 20111222
  Serious: Yes (Hospitalization)
  Sender: FDA-Public Use
  Company Number: US-UCBSA-036776

PATIENT
  Sex: Female
  Weight: 53.6 kg

DRUGS (7)
  1. LEUPROLIDE ACETATE [Concomitant]
     Indication: EPILEPSY
     Dosage: 11.25 MG. FREQ.:Q3M
  2. PROGESTERONE [Concomitant]
     Indication: EPILEPSY
     Dosage: 200 MG Q AM AND 400 MG Q PM
     Route: 048
  3. LEVETIRACETAM [Concomitant]
     Indication: EPILEPSY
     Route: 048
  4. DIAZEPAM [Concomitant]
     Indication: ANXIETY
     Route: 048
  5. LACOSAMIDE [Suspect]
     Indication: PARTIAL SEIZURES
     Route: 048
     Dates: start: 20110506
  6. FOLIC ACID [Concomitant]
     Indication: NEURAL TUBE DEFECT
     Route: 048
  7. LAMOTRIGINE [Concomitant]
     Indication: EPILEPSY
     Route: 048

REACTIONS (4)
  - ATAXIA [None]
  - HEADACHE [None]
  - DIPLOPIA [None]
  - DYSARTHRIA [None]
